FAERS Safety Report 4371057-1 (Version None)
Quarter: 2004Q2

REPORT INFORMATION
  Report Type: 
  Country: None (occurrence: None)
  Receive Date: 20040604
  Receipt Date: 20040525
  Transmission Date: 20050107
  Serious: Yes (Other)
  Sender: FDA-Public Use
  Company Number: PHRM2004FR01927

PATIENT
  Sex: Female

DRUGS (3)
  1. TEGRETOL [Suspect]
     Indication: PARTIAL SEIZURES
     Route: 048
  2. CLOBAZAM [Concomitant]
     Route: 048
  3. LEVETIRACETAM [Concomitant]
     Route: 048

REACTIONS (2)
  - HYPOCALCAEMIA [None]
  - RICKETS [None]
